FAERS Safety Report 4645670-8 (Version None)
Quarter: 2005Q2

REPORT INFORMATION
  Report Type: 
  Country: None (occurrence: None)
  Receive Date: 20050331
  Receipt Date: 20050218
  Transmission Date: 20051028
  Serious: No
  Sender: FDA-Public Use
  Company Number: 05P-163-0291313-00

PATIENT
  Age: 64 Year
  Sex: Female
  Weight: 83.9154 kg

DRUGS (8)
  1. HUMIRA [Suspect]
     Indication: RHEUMATOID ARTHRITIS
     Dosage: 40 MG, 1 IN 2 WK, SUBCUTANEOUS
     Route: 058
     Dates: start: 20050203, end: 20050203
  2. FOLIC ACID [Concomitant]
  3. PREDNISONE [Concomitant]
  4. HYDROCHLOROTHIAZIDE [Concomitant]
  5. METOPROLOL SUCCINATE [Concomitant]
  6. POTASSIUM CHLORIDE [Concomitant]
  7. ALENDRONATE SODIUM [Concomitant]
  8. CYANOCOBALAMIN [Concomitant]

REACTIONS (3)
  - CONTUSION [None]
  - HAEMATOMA [None]
  - OPEN WOUND [None]
